FAERS Safety Report 18523582 (Version 2)
Quarter: 2021Q3

REPORT INFORMATION
  Report Type: Report from Study
  Country: US (occurrence: US)
  Receive Date: 20201119
  Receipt Date: 20210901
  Transmission Date: 20211014
  Serious: Yes (Hospitalization, Other)
  Sender: FDA-Public Use
  Company Number: US-PFIZER INC-2020444740

PATIENT

DRUGS (6)
  1. PREDNISONE. [Suspect]
     Active Substance: PREDNISONE
     Indication: INFLAMMATORY BOWEL DISEASE
     Dosage: 30 MG, DAILY
  2. TOFACITINIB [Suspect]
     Active Substance: TOFACITINIB
     Indication: INFLAMMATORY BOWEL DISEASE
     Dosage: 30 MG, DAILY
  3. TOFACITINIB [Suspect]
     Active Substance: TOFACITINIB
     Dosage: 5 MG, 2X/DAY
     Route: 048
  4. TOFACITINIB [Suspect]
     Active Substance: TOFACITINIB
     Indication: COLITIS ULCERATIVE
     Dosage: 10 MG, 2X/DAY
     Route: 048
  5. VEDOLIZUMAB [Suspect]
     Active Substance: VEDOLIZUMAB
     Indication: INFLAMMATORY BOWEL DISEASE
     Dosage: 30 MG, DAILY
  6. VEDOLIZUMAB [Suspect]
     Active Substance: VEDOLIZUMAB
     Dosage: 300 MG, CYCLIC, EVERY 8 WEEKS
     Route: 042

REACTIONS (2)
  - Deep vein thrombosis [Unknown]
  - Arthritis bacterial [Recovered/Resolved]
